FAERS Safety Report 10458666 (Version 2)
Quarter: 2015Q1

REPORT INFORMATION
  Report Type: Report from Study
  Country: NL (occurrence: NL)
  Receive Date: 20140917
  Receipt Date: 20150205
  Transmission Date: 20150720
  Serious: Yes (Hospitalization)
  Sender: FDA-Public Use
  Company Number: NL-SA-2014SA126776

PATIENT
  Age: 75 Year
  Sex: Male

DRUGS (2)
  1. ACENOCOUMAROL [Suspect]
     Active Substance: ACENOCOUMAROL
     Indication: ATRIAL FIBRILLATION
     Route: 065
  2. CLEXANE [Suspect]
     Active Substance: ENOXAPARIN SODIUM
     Indication: ATRIAL FIBRILLATION
     Dosage: 100 MG/ML
     Route: 058

REACTIONS (4)
  - Immobilisation prolonged [Unknown]
  - Haemoglobin decreased [Unknown]
  - Procedural haemorrhage [Unknown]
  - Haematoma [Unknown]
